FAERS Safety Report 21218394 (Version 1)
Quarter: 2022Q3

REPORT INFORMATION
  Report Type: Report from Study
  Country: US (occurrence: US)
  Receive Date: 20220816
  Receipt Date: 20220816
  Transmission Date: 20221026
  Serious: Yes (Hospitalization, Other)
  Sender: FDA-Public Use
  Company Number: US-BAYER-2022A105303

PATIENT
  Age: 80 Year
  Sex: Female

DRUGS (3)
  1. ADEMPAS [Suspect]
     Active Substance: RIOCIGUAT
     Indication: Pulmonary arterial hypertension
     Dosage: UNK
     Route: 048
  2. ADEMPAS [Suspect]
     Active Substance: RIOCIGUAT
     Indication: Pulmonary arterial hypertension
     Dosage: 2.5 MG, TID
     Route: 048
     Dates: start: 202107, end: 20220808
  3. METOPROLOL [Concomitant]
     Active Substance: METOPROLOL

REACTIONS (6)
  - Catheterisation cardiac [None]
  - Product dose omission issue [None]
  - Hypotension [None]
  - Loss of consciousness [None]
  - Restless legs syndrome [None]
  - Drug hypersensitivity [None]

NARRATIVE: CASE EVENT DATE: 20220701
